FAERS Safety Report 18485703 (Version 12)
Quarter: 2021Q2

REPORT INFORMATION
  Report Type: Report from Study
  Country: IL (occurrence: IL)
  Receive Date: 20201110
  Receipt Date: 20210510
  Transmission Date: 20210717
  Serious: Yes (Hospitalization)
  Sender: FDA-Public Use
  Company Number: IL-EISAI MEDICAL RESEARCH-EC-2020-083488

PATIENT
  Age: 74 Year
  Sex: Female
  Weight: 66 kg

DRUGS (15)
  1. VABEN [Concomitant]
     Active Substance: OXAZEPAM
     Dates: start: 20060117
  2. AMLODIPINE [Concomitant]
     Active Substance: AMLODIPINE BESYLATE
     Dates: start: 20200427
  3. BONDORMIN [Concomitant]
     Active Substance: BROTIZOLAM
     Dates: start: 20060117
  4. ALDACTONE [Concomitant]
     Active Substance: SPIRONOLACTONE
     Dates: start: 20131107
  5. XARELTO [Concomitant]
     Active Substance: RIVAROXABAN
     Dates: start: 20200218, end: 20201222
  6. LENVATINIB [Suspect]
     Active Substance: LENVATINIB
     Route: 048
     Dates: start: 20201102, end: 20201103
  7. LENVATINIB [Suspect]
     Active Substance: LENVATINIB
     Dosage: DOSE DECREASED
     Route: 048
     Dates: start: 20201201
  8. PEMBROLIZUMAB. [Suspect]
     Active Substance: PEMBROLIZUMAB
     Indication: ENDOMETRIAL CANCER
     Route: 041
     Dates: start: 20191124, end: 20201013
  9. EXFORGE [Concomitant]
     Active Substance: AMLODIPINE BESYLATE\VALSARTAN
     Dates: start: 20200108
  10. SLOW?K [Concomitant]
     Active Substance: POTASSIUM CHLORIDE
     Dates: start: 20200423
  11. LENVATINIB [Suspect]
     Active Substance: LENVATINIB
     Indication: ENDOMETRIAL CANCER
     Dosage: STARTING DOSE AT 20 MG; FLUCTUATED DOSE
     Route: 048
     Dates: start: 20191124, end: 20201030
  12. PEMBROLIZUMAB. [Suspect]
     Active Substance: PEMBROLIZUMAB
     Route: 041
     Dates: start: 20201125
  13. PEMBROLIZUMAB. [Suspect]
     Active Substance: PEMBROLIZUMAB
     Route: 041
     Dates: start: 20201104, end: 20201104
  14. ELTROXIN [Concomitant]
     Active Substance: LEVOTHYROXINE
     Dates: start: 20191230
  15. CANDOR [Concomitant]
     Dates: start: 20200218

REACTIONS (1)
  - Hypertension [Recovered/Resolved]

NARRATIVE: CASE EVENT DATE: 20201104
